FAERS Safety Report 8363677-4 (Version None)
Quarter: 2012Q2

REPORT INFORMATION
  Report Type: 
  Country: None (occurrence: None)
  Receive Date: 20120516
  Receipt Date: 20120514
  Transmission Date: 20120825
  Serious: Yes (Hospitalization)
  Sender: FDA-Public Use
  Company Number: NL-ROXANE LABORATORIES, INC.-2012-RO-01227RO

PATIENT
  Age: 44 Year
  Sex: Male

DRUGS (8)
  1. ONDANSETRON [Suspect]
     Indication: PROPHYLAXIS OF NAUSEA AND VOMITING
  2. APREPITANT [Suspect]
     Indication: PROPHYLAXIS OF NAUSEA AND VOMITING
     Dosage: 125 MG
  3. CISPLATIN [Suspect]
     Indication: LARYNGEAL CANCER
  4. DEXAMETHASONE [Suspect]
     Indication: PROPHYLAXIS OF NAUSEA AND VOMITING
  5. CITALOPRAM HYDROBROMIDE [Suspect]
     Indication: DEPRESSION
  6. APREPITANT [Suspect]
     Dosage: 80 MG
  7. APREPITANT [Suspect]
     Dosage: 80 MG
  8. QUETIAPINE FUMARATE [Suspect]
     Indication: ANXIETY
     Dosage: 50 MG

REACTIONS (2)
  - DEHYDRATION [None]
  - SOMNOLENCE [None]
